FAERS Safety Report 5947893-4 (Version None)
Quarter: 2008Q4

REPORT INFORMATION
  Report Type: 
  Country: None (occurrence: None)
  Receive Date: 20081111
  Receipt Date: 20080820
  Transmission Date: 20090506
  Serious: No
  Sender: FDA-Public Use
  Company Number: A0740495A

PATIENT
  Age: 42 Year
  Sex: Female
  Weight: 86.4 kg

DRUGS (2)
  1. TREXIMET [Suspect]
     Indication: HEADACHE
     Dosage: 1TAB PER DAY
     Route: 048
     Dates: start: 20080620, end: 20080723
  2. NO CONCURRENT MEDICATION [Concomitant]

REACTIONS (1)
  - CHEST PAIN [None]
